FAERS Safety Report 8172495-1 (Version None)
Quarter: 2012Q1

REPORT INFORMATION
  Report Type: 
  Country: None (occurrence: None)
  Receive Date: 20120227
  Receipt Date: 20120227
  Transmission Date: 20120608
  Serious: Yes (Hospitalization)
  Sender: FDA-Public Use
  Company Number: None

PATIENT
  Age: 27 Year
  Sex: Female
  Weight: 63.7 kg

DRUGS (2)
  1. BACTRIM [Suspect]
     Indication: ARTHROPOD BITE
     Dosage: PO
     Route: 048
  2. CIPROFLOXACIN [Concomitant]

REACTIONS (4)
  - LIVER INJURY [None]
  - JAUNDICE [None]
  - PYREXIA [None]
  - KIDNEY INFECTION [None]
